FAERS Safety Report 17930768 (Version 2)
Quarter: 2020Q3

REPORT INFORMATION
  Report Type: Spontaneous
  Country: US (occurrence: US)
  Receive Date: 20200623
  Receipt Date: 20200706
  Transmission Date: 20201103
  Serious: Yes (Hospitalization)
  Sender: FDA-Public Use
  Company Number: US-VERTEX PHARMACEUTICALS-2020-013326

PATIENT
  Age: 35 Year
  Sex: Female

DRUGS (28)
  1. FERREX [Concomitant]
     Active Substance: FERRIC POLYSACCHARIDE COMPLEX
  2. VITAMIN E [Concomitant]
     Active Substance: .ALPHA.-TOCOPHEROL
  3. CAYSTON [Concomitant]
     Active Substance: AZTREONAM
  4. PANCRELIPASE. [Concomitant]
     Active Substance: PANCRELIPASE
  5. NASONEX [Concomitant]
     Active Substance: MOMETASONE FUROATE
  6. LANTUS [Concomitant]
     Active Substance: INSULIN GLARGINE
  7. OMEPRAZOLE. [Concomitant]
     Active Substance: OMEPRAZOLE
  8. PULMOZYME [Concomitant]
     Active Substance: DORNASE ALFA
  9. TOBI PODHALER [Concomitant]
     Active Substance: TOBRAMYCIN
  10. RANITIDINE. [Concomitant]
     Active Substance: RANITIDINE
  11. TOBRAMYCIN. [Concomitant]
     Active Substance: TOBRAMYCIN
  12. BUPROPION. [Concomitant]
     Active Substance: BUPROPION
  13. AZITHROMYCIN ANHYDROUS. [Concomitant]
     Active Substance: AZITHROMYCIN ANHYDROUS
  14. NOVOLOG [Concomitant]
     Active Substance: INSULIN ASPART
  15. ALBUTEROL [SALBUTAMOL] [Concomitant]
     Active Substance: ALBUTEROL
  16. VANCOMYCIN [Concomitant]
     Active Substance: VANCOMYCIN
  17. XOPENEX [Concomitant]
     Active Substance: LEVALBUTEROL HYDROCHLORIDE
  18. SUDAFED [XYLOMETAZOLINE HYDROCHLORIDE] [Concomitant]
     Active Substance: XYLOMETAZOLINE HYDROCHLORIDE
  19. CALCIUM CARBONATE. [Concomitant]
     Active Substance: CALCIUM CARBONATE
  20. SINGULAIR [Concomitant]
     Active Substance: MONTELUKAST SODIUM
  21. GABAPENTIN. [Concomitant]
     Active Substance: GABAPENTIN
  22. SYMBICORT [Concomitant]
     Active Substance: BUDESONIDE\FORMOTEROL FUMARATE DIHYDRATE
  23. LEVOTHYROXINE. [Concomitant]
     Active Substance: LEVOTHYROXINE
  24. TRIKAFTA [Suspect]
     Active Substance: ELEXACAFTOR\IVACAFTOR\TEZACAFTOR
     Indication: CYSTIC FIBROSIS
     Dosage: 2 TABS 100 MG ELEXA/ 50 MG TEZA/ 75 MG IVA, EVERY OTHER DAY, AM  ALTER WITH 1 TAB 150MG IVA
     Route: 048
     Dates: start: 20191221
  25. METOCLOPRAM [Concomitant]
     Active Substance: METOCLOPRAMIDE
  26. HYDROXYZINE [Concomitant]
     Active Substance: HYDROXYZINE HYDROCHLORIDE
  27. MEPHYTON [Concomitant]
     Active Substance: PHYTONADIONE
  28. SUDAFED NASAL DECONGESTANT MAXIMUM STRENGTH [Concomitant]
     Active Substance: PSEUDOEPHEDRINE HYDROCHLORIDE

REACTIONS (1)
  - Cystic fibrosis respiratory infection suppression [Unknown]

NARRATIVE: CASE EVENT DATE: 202005
